FAERS Safety Report 7463876-X (Version None)
Quarter: 2011Q2

REPORT INFORMATION
  Report Type: 
  Country: None (occurrence: None)
  Receive Date: 20110506
  Receipt Date: 20110429
  Transmission Date: 20111010
  Serious: Yes (Other)
  Sender: FDA-Public Use
  Company Number: DE-CEPHALON-2011002157

PATIENT
  Age: 11 Year
  Sex: Female

DRUGS (2)
  1. GABITRIL [Suspect]
     Indication: CONVULSION
     Route: 048
  2. GABITRIL [Suspect]

REACTIONS (3)
  - CONVULSION [None]
  - COORDINATION ABNORMAL [None]
  - PARALYSIS [None]
